FAERS Safety Report 8133984-9 (Version None)
Quarter: 2012Q1

REPORT INFORMATION
  Report Type: 
  Country: None (occurrence: None)
  Receive Date: 20120213
  Receipt Date: 20111219
  Transmission Date: 20120608
  Serious: Yes (Death)
  Sender: FDA-Public Use
  Company Number: AU-BAXTER-2011BH039934

PATIENT
  Age: 67 Year
  Sex: Female

DRUGS (3)
  1. CLINOLEIC 20% [Suspect]
     Indication: PARENTERAL NUTRITION
     Dosage: DOSE UNIT:UNKNOWN
     Route: 065
  2. TRAVASOL 10% W/ ELECTROLYTES [Suspect]
     Indication: PARENTERAL NUTRITION
     Route: 065
  3. DEXTROSE 10% [Suspect]
     Indication: PARENTERAL NUTRITION
     Route: 065

REACTIONS (1)
  - DISEASE COMPLICATION [None]
